FAERS Safety Report 12505183 (Version 3)
Quarter: 2016Q3

REPORT INFORMATION
  Report Type: Spontaneous
  Country: US (occurrence: US)
  Receive Date: 20160628
  Receipt Date: 20160721
  Transmission Date: 20161109
  Serious: Yes (Hospitalization)
  Sender: FDA-Public Use
  Company Number: US-GLAXOSMITHKLINE-US2016GSK090490

PATIENT
  Age: 74 Year
  Sex: Female

DRUGS (1)
  1. SEREVENT DISKUS [Suspect]
     Active Substance: SALMETEROL XINAFOATE
     Indication: ASTHMA
     Dosage: UNK
     Route: 055
     Dates: start: 2001

REACTIONS (7)
  - Weight decreased [Unknown]
  - Dizziness [Unknown]
  - Convalescent [Recovered/Resolved]
  - Fall [Recovered/Resolved]
  - Fracture [Unknown]
  - Hyponatraemia [Unknown]
  - Electrolyte depletion [Unknown]

NARRATIVE: CASE EVENT DATE: 201606
